FAERS Safety Report 21888898 (Version 1)
Quarter: 2023Q1

REPORT INFORMATION
  Report Type: Spontaneous
  Country: CN (occurrence: CN)
  Receive Date: 20230120
  Receipt Date: 20230120
  Transmission Date: 20230418
  Serious: Yes (Other)
  Sender: FDA-Public Use
  Company Number: CN-AstraZeneca-2023A005909

PATIENT
  Age: 84 Year
  Sex: Female
  Weight: 60 kg

DRUGS (1)
  1. METOPROLOL SUCCINATE [Suspect]
     Active Substance: METOPROLOL SUCCINATE
     Indication: Ventricular arrhythmia
     Dosage: 11.750000 TABLET, ONCE EVERY ONE DAY
     Route: 048
     Dates: start: 20220604, end: 20220726

REACTIONS (5)
  - Amaurosis [Unknown]
  - Electrocardiogram abnormal [Recovering/Resolving]
  - Sinoatrial block [Recovering/Resolving]
  - Sinus arrest [Recovering/Resolving]
  - Dizziness [Unknown]

NARRATIVE: CASE EVENT DATE: 20220726
